FAERS Safety Report 6792799-4 (Version None)
Quarter: 2010Q2

REPORT INFORMATION
  Report Type: 
  Country: None (occurrence: None)
  Receive Date: 20100624
  Receipt Date: 20081014
  Transmission Date: 20101027
  Serious: No
  Sender: FDA-Public Use
  Company Number: US-PFIZER INC-2008087437

PATIENT
  Sex: Male

DRUGS (5)
  1. GENOTROPIN [Suspect]
     Indication: GROWTH HORMONE DEFICIENCY
     Dates: start: 20080901
  2. METFORMIN HCL [Concomitant]
  3. CORTEF [Concomitant]
  4. SYNTHROID [Concomitant]
  5. CISPLATIN [Concomitant]

REACTIONS (2)
  - FEELING HOT [None]
  - HEADACHE [None]
